FAERS Safety Report 13835092 (Version 1)
Quarter: 2017Q3

REPORT INFORMATION
  Report Type: Spontaneous
  Country: US (occurrence: US)
  Receive Date: 20170804
  Receipt Date: 20170804
  Transmission Date: 20171127
  Serious: Yes (Hospitalization)
  Sender: FDA-Public Use
  Company Number: None

PATIENT
  Age: 82 Year
  Sex: Male
  Weight: 75.8 kg

DRUGS (3)
  1. METFORMIN HYDROCHLORIDE. [Suspect]
     Active Substance: METFORMIN HYDROCHLORIDE
     Dates: end: 20170314
  2. TAXOL [Suspect]
     Active Substance: PACLITAXEL
     Dates: end: 20170131
  3. CARBOPLATIN. [Suspect]
     Active Substance: CARBOPLATIN
     Dates: end: 20170103

REACTIONS (5)
  - Pneumonia aspiration [None]
  - Dysphagia [None]
  - Atrial fibrillation [None]
  - Oesophageal stenosis [None]
  - Hyponatraemia [None]

NARRATIVE: CASE EVENT DATE: 20170223
